FAERS Safety Report 10449187 (Version 2)
Quarter: 2014Q4

REPORT INFORMATION
  Report Type: Spontaneous
  Country: CN (occurrence: CN)
  Receive Date: 20140912
  Receipt Date: 20141027
  Transmission Date: 20150528
  Serious: Yes (Other)
  Sender: FDA-Public Use
  Company Number: CN-BRISTOL-MYERS SQUIBB COMPANY-21361852

PATIENT
  Age: 49 Year
  Sex: Female

DRUGS (1)
  1. BARACLUDE [Suspect]
     Active Substance: ENTECAVIR
     Indication: CHRONIC HEPATITIS B
     Route: 048
     Dates: start: 20130202

REACTIONS (1)
  - Neoplasm [Unknown]
